FAERS Safety Report 8426693-X (Version None)
Quarter: 2012Q2

REPORT INFORMATION
  Report Type: 
  Country: None (occurrence: None)
  Receive Date: 20120611
  Receipt Date: 20120611
  Transmission Date: 20120825
  Serious: Yes (Death)
  Sender: FDA-Public Use
  Company Number: US-PFIZER INC-2011002672

PATIENT
  Age: 49 Year
  Sex: Female

DRUGS (5)
  1. ALPRAZOLAM [Suspect]
  2. CYCLOBENZAPRINE [Suspect]
  3. GABAPENTIN [Suspect]
  4. DULOXETIME HYDROCHLORIDE [Suspect]
  5. VERAPAMIL HCL [Suspect]

REACTIONS (1)
  - COMPLETED SUICIDE [None]
